FAERS Safety Report 9737552 (Version 1)
Quarter: 2013Q4

REPORT INFORMATION
  Report Type: Spontaneous
  Country: US (occurrence: US)
  Receive Date: 20131207
  Receipt Date: 20131207
  Transmission Date: 20140711
  Serious: No
  Sender: FDA-Public Use
  Company Number: US-009507513-1311USA008539

PATIENT
  Sex: Female

DRUGS (4)
  1. COZAAR [Suspect]
     Indication: HYPERTENSION
     Dosage: ONE TABLET DAILY
     Route: 048
     Dates: start: 201201
  2. LABETALOL HYDROCHLORIDE [Concomitant]
  3. VERAPAMIL [Concomitant]
  4. SPIRONOLACTONE [Concomitant]

REACTIONS (1)
  - Diarrhoea [Not Recovered/Not Resolved]
